FAERS Safety Report 20193757 (Version 1)
Quarter: 2021Q4

REPORT INFORMATION
  Report Type: Spontaneous
  Country: US (occurrence: None)
  Receive Date: 20211215
  Receipt Date: 20211215
  Transmission Date: 20220303
  Serious: No
  Sender: FDA-Public Use
  Company Number: None

PATIENT
  Age: 54 Year
  Sex: Female
  Weight: 57.20 kg

DRUGS (1)
  1. TEMOZOLOMIDE [Suspect]
     Active Substance: TEMOZOLOMIDE
     Indication: Glioblastoma
     Dosage: OTHER FREQUENCY : DAILY FOR 5 DAYS;?
     Route: 002
     Dates: start: 20210316, end: 20211015

REACTIONS (2)
  - Thrombocytopenia [None]
  - Therapy cessation [None]

NARRATIVE: CASE EVENT DATE: 20211015
